FAERS Safety Report 7824909-1 (Version None)
Quarter: 2011Q4

REPORT INFORMATION
  Report Type: 
  Country: None (occurrence: None)
  Receive Date: 20111019
  Receipt Date: 20110818
  Transmission Date: 20120403
  Serious: No
  Sender: FDA-Public Use
  Company Number: US-BRISTOL-MYERS SQUIBB COMPANY-15561566

PATIENT
  Sex: Female

DRUGS (6)
  1. CLONIDINE [Concomitant]
  2. SYNTHROID [Concomitant]
  3. DILTIAZEM HCL [Concomitant]
  4. VITAMIN TAB [Concomitant]
  5. AVALIDE [Suspect]
  6. COREG [Concomitant]

REACTIONS (1)
  - BLOOD PRESSURE INADEQUATELY CONTROLLED [None]
